FAERS Safety Report 19921134 (Version 1)
Quarter: 2021Q4

REPORT INFORMATION
  Report Type: Spontaneous
  Country: JP (occurrence: JP)
  Receive Date: 20211006
  Receipt Date: 20211006
  Transmission Date: 20220304
  Serious: Yes (Hospitalization)
  Sender: FDA-Public Use
  Company Number: JP-SERVIER-S21010919

PATIENT
  Age: 63 Year
  Sex: Male

DRUGS (3)
  1. ONIVYDE [Suspect]
     Active Substance: IRINOTECAN HYDROCHLORIDE
     Indication: Pancreatic carcinoma
     Dosage: 50 MG/M2
     Route: 065
     Dates: start: 20210825
  2. FLUOROURACIL [Concomitant]
     Active Substance: FLUOROURACIL
     Indication: Pancreatic carcinoma
     Dosage: 2400 MG/M2
     Route: 065
     Dates: start: 20210825
  3. ISOVORIN [Concomitant]
     Active Substance: LEUCOVORIN CALCIUM
     Indication: Pancreatic carcinoma
     Dosage: 200 MG/M2
     Route: 065
     Dates: start: 20210825

REACTIONS (2)
  - Intestinal obstruction [Recovered/Resolved]
  - Malignant neoplasm progression [Unknown]

NARRATIVE: CASE EVENT DATE: 20210101
